FAERS Safety Report 16281945 (Version 1)
Quarter: 2019Q2

REPORT INFORMATION
  Report Type: Spontaneous
  Country: CN (occurrence: CN)
  Receive Date: 20190507
  Receipt Date: 20190507
  Transmission Date: 20190711
  Serious: Yes (Hospitalization)
  Sender: FDA-Public Use
  Company Number: CN-PFIZER INC-2019189474

PATIENT
  Age: 69 Year
  Sex: Female
  Weight: 55 kg

DRUGS (9)
  1. DEXAMETHASONE SODIUM PHOSPHATE. [Concomitant]
     Active Substance: DEXAMETHASONE SODIUM PHOSPHATE
     Indication: BREAST CANCER
     Dosage: 20 MG, 1X/DAY
     Route: 041
     Dates: start: 20190425, end: 20190425
  2. DEXAMETHASONE ACETATE [Concomitant]
     Active Substance: DEXAMETHASONE ACETATE
     Indication: BREAST CANCER
     Dosage: 7.5 MG, 1X/DAY
     Route: 048
     Dates: start: 20190424, end: 20190425
  3. SODIUM CHLORIDE. [Concomitant]
     Active Substance: SODIUM CHLORIDE
     Indication: BREAST CANCER
     Dosage: 100 ML, 1X/DAY
     Route: 041
     Dates: start: 20190425, end: 20190425
  4. ENDOXAN [Suspect]
     Active Substance: CYCLOPHOSPHAMIDE
     Indication: BREAST CANCER
     Dosage: 0.9 G, 1X/DAY
     Route: 041
     Dates: start: 20190425, end: 20190425
  5. CIMETIDINE [Concomitant]
     Active Substance: CIMETIDINE
     Indication: BREAST CANCER
     Dosage: 0.2 G, 1X/DAY
     Route: 041
     Dates: start: 20190425, end: 20190425
  6. GLUCOSE [Concomitant]
     Active Substance: DEXTROSE
     Indication: BREAST CANCER
     Dosage: 250 ML, 1X/DAY
     Route: 041
     Dates: start: 20190425, end: 20190425
  7. PROMETHAZINE HYDROCHLORIDE. [Concomitant]
     Active Substance: PROMETHAZINE HYDROCHLORIDE
     Indication: BREAST CANCER
     Dosage: 25 MG, 1X/DAY
     Route: 030
     Dates: start: 20190425, end: 20190425
  8. ANZATAX (PACLITAXEL) [Suspect]
     Active Substance: PACLITAXEL
     Indication: BREAST CANCER
     Dosage: 270 MG, 1X/DAY
     Route: 041
     Dates: start: 20190425, end: 20190425
  9. GRANISETRON HYDROCHLORIDE. [Concomitant]
     Active Substance: GRANISETRON HYDROCHLORIDE
     Indication: BREAST CANCER
     Dosage: 3 MG, 2X/DAY
     Route: 041
     Dates: start: 20190425, end: 20190425

REACTIONS (4)
  - Anal incontinence [Recovered/Resolved]
  - Hyponatraemia [Recovered/Resolved]
  - Dizziness [Recovered/Resolved]
  - Electrolyte imbalance [Recovered/Resolved]

NARRATIVE: CASE EVENT DATE: 20190426
